FAERS Safety Report 9586472 (Version 7)
Quarter: 2014Q1

REPORT INFORMATION
  Report Type: Report from Study
  Country: KR (occurrence: KR)
  Receive Date: 20131003
  Receipt Date: 20140314
  Transmission Date: 20141002
  Serious: Yes (Hospitalization)
  Sender: FDA-Public Use
  Company Number: KR-JNJFOC-20130916312

PATIENT
  Age: 15 Year
  Sex: Male
  Weight: 63.5 kg

DRUGS (8)
  1. REMICADE [Suspect]
     Indication: CROHN^S DISEASE
     Route: 042
     Dates: start: 20131010, end: 20131010
  2. REMICADE [Suspect]
     Indication: CROHN^S DISEASE
     Route: 042
     Dates: start: 20130816, end: 20130816
  3. REMICADE [Suspect]
     Indication: CROHN^S DISEASE
     Route: 042
     Dates: start: 20130719, end: 20130719
  4. REMICADE [Suspect]
     Indication: CROHN^S DISEASE
     Route: 042
     Dates: start: 20130705, end: 20130705
  5. PENTASA S.R. [Concomitant]
     Indication: CROHN^S DISEASE
     Dosage: FREQUENCY: 2
     Route: 048
     Dates: start: 20120213, end: 20121224
  6. AZATHIOPRINE [Concomitant]
     Indication: CROHN^S DISEASE
     Dosage: FREQUENCY: 1
     Route: 048
     Dates: start: 20121225
  7. AZATHIOPRINE [Concomitant]
     Indication: CROHN^S DISEASE
     Dosage: FREQUENCY: 1
     Route: 048
     Dates: start: 20120213, end: 20121224
  8. PENTASA [Concomitant]
     Indication: CROHN^S DISEASE
     Dosage: FREQUENCY: 2
     Route: 048
     Dates: start: 20121225

REACTIONS (5)
  - Pyloric stenosis [Recovered/Resolved]
  - Haematemesis [Recovering/Resolving]
  - Anaemia [Unknown]
  - Cold sweat [Recovering/Resolving]
  - Leukopenia [Recovered/Resolved]
